FAERS Safety Report 9182072 (Version 1)
Quarter: 2013Q1

REPORT INFORMATION
  Report Type: Spontaneous
  Country: US (occurrence: None)
  Receive Date: 20130321
  Receipt Date: 20130321
  Transmission Date: 20140127
  Serious: No
  Sender: FDA-Public Use
  Company Number: None

PATIENT
  Age: 34 Year
  Sex: Female
  Weight: 112.04 kg

DRUGS (1)
  1. DONEPEZIL [Suspect]
     Dosage: 5 MG Q AM
     Dates: start: 20121003

REACTIONS (4)
  - Drug ineffective [None]
  - Speech disorder [None]
  - Depression [None]
  - Apathy [None]
